FAERS Safety Report 5861560-7 (Version None)
Quarter: 2008Q3

REPORT INFORMATION
  Report Type: 
  Country: None (occurrence: None)
  Receive Date: 20080827
  Receipt Date: 20080609
  Transmission Date: 20090109
  Serious: No
  Sender: FDA-Public Use
  Company Number: US-ABBOTT-08P-163-0455833-00

PATIENT
  Sex: Male
  Weight: 68.1 kg

DRUGS (6)
  1. COATED PDS [Suspect]
     Indication: BLOOD TRIGLYCERIDES INCREASED
     Route: 048
     Dates: start: 20080608
  2. WARFARIN SODIUM [Concomitant]
     Indication: ATRIAL FIBRILLATION
     Route: 048
     Dates: start: 20030101
  3. BETA-ACETYLDIGOXIN [Concomitant]
     Indication: ATRIAL FIBRILLATION
     Route: 048
  4. NATALOL [Concomitant]
     Indication: ATRIAL FIBRILLATION
     Route: 048
  5. SKIN STUFF [Concomitant]
     Indication: SKIN DISORDER
  6. ALLEGRA-D [Concomitant]
     Indication: HYPERSENSITIVITY

REACTIONS (1)
  - FLUSHING [None]
